FAERS Safety Report 7497762-6 (Version None)
Quarter: 2011Q2

REPORT INFORMATION
  Report Type: 
  Country: None (occurrence: None)
  Receive Date: 20110524
  Receipt Date: 20110516
  Transmission Date: 20111010
  Serious: Yes (Other)
  Sender: FDA-Public Use
  Company Number: NL-AMGEN-NLDSP2011025923

PATIENT
  Age: 46 Year
  Sex: Female

DRUGS (4)
  1. CALCICHEW [Concomitant]
     Dosage: UNK
  2. FOLIC ACID [Concomitant]
     Dosage: UNK
  3. ENBREL [Suspect]
     Indication: RHEUMATOID ARTHRITIS
     Dosage: 50 MG, WEEKLY
     Dates: start: 20110301
  4. MTX                                /00113802/ [Concomitant]
     Dosage: UNK

REACTIONS (2)
  - HYPERTENSION [None]
  - PRURITUS GENERALISED [None]
